FAERS Safety Report 7808395-3 (Version None)
Quarter: 2011Q4

REPORT INFORMATION
  Report Type: 
  Country: None (occurrence: None)
  Receive Date: 20111011
  Receipt Date: 20111011
  Transmission Date: 20120403
  Serious: Yes (Other)
  Sender: FDA-Public Use
  Company Number: None

PATIENT
  Age: 53 Year
  Sex: Female

DRUGS (1)
  1. PROZAC [Suspect]
     Indication: DYSTHYMIC DISORDER
     Dosage: 1 DAILY PO
     Route: 048
     Dates: start: 20030101

REACTIONS (2)
  - ANXIETY [None]
  - FEELING ABNORMAL [None]
